FAERS Safety Report 10879758 (Version 7)
Quarter: 2018Q1

REPORT INFORMATION
  Report Type: Report from Study
  Country: BR (occurrence: BR)
  Receive Date: 20150302
  Receipt Date: 20180112
  Transmission Date: 20180508
  Serious: Yes (Hospitalization, Other)
  Sender: FDA-Public Use
  Company Number: PHHY2015BR024002

PATIENT
  Age: 68 Year
  Sex: Female
  Weight: 47 kg

DRUGS (14)
  1. ADDERA D3 [Concomitant]
     Active Substance: CHOLECALCIFEROL
     Dosage: 1 DF, QW
     Route: 048
     Dates: start: 201411
  2. ACLASTA [Suspect]
     Active Substance: ZOLEDRONIC ACID
     Dosage: 1 DF (5 MG/100 ML), Q12MO
     Route: 042
     Dates: start: 2014
  3. ACLASTA [Suspect]
     Active Substance: ZOLEDRONIC ACID
     Dosage: 5 MG, Q12MO
     Route: 042
     Dates: start: 20171214, end: 20171214
  4. ACLASTA [Suspect]
     Active Substance: ZOLEDRONIC ACID
     Indication: OSTEOPOROSIS
     Dosage: 1 DF (5 MG/100 ML), Q12MO
     Route: 042
     Dates: start: 201003
  5. ACLASTA [Suspect]
     Active Substance: ZOLEDRONIC ACID
     Dosage: 1 DF (5 MG/100 ML), Q12MO
     Route: 042
     Dates: start: 2013
  6. ACLASTA [Suspect]
     Active Substance: ZOLEDRONIC ACID
     Dosage: 1 DF (5 MG/100 ML), Q12MO
     Route: 042
     Dates: start: 201604
  7. XARELTO [Concomitant]
     Active Substance: RIVAROXABAN
     Indication: COAGULOPATHY
     Dosage: 1 DF, QD FOR 2 YEARS
     Route: 048
  8. COUMADIN [Concomitant]
     Active Substance: WARFARIN SODIUM
     Indication: ANTICOAGULANT THERAPY
     Dosage: 1 MG, QD (FOR MORE THAN 5 YEARS)
     Route: 048
  9. DIOSMINA HESPERIDINA [Concomitant]
     Indication: CARDIOVASCULAR DISORDER
     Dosage: 2 DF, QD (FOR 2 YEARS)
     Route: 048
  10. ADDERA D3 [Concomitant]
     Active Substance: CHOLECALCIFEROL
     Indication: PRODUCT USED FOR UNKNOWN INDICATION
     Dosage: 1 DF, QW
     Route: 048
     Dates: start: 201401
  11. LOSARTAN. [Concomitant]
     Active Substance: LOSARTAN
     Indication: PROPHYLAXIS
     Dosage: 1 DF, QD
     Route: 048
  12. ACLASTA [Suspect]
     Active Substance: ZOLEDRONIC ACID
     Dosage: 1 DF (5 MG/100 ML), Q12MO
     Route: 042
     Dates: start: 20150428
  13. ACLASTA [Suspect]
     Active Substance: ZOLEDRONIC ACID
     Dosage: 1 DF (5 MG/100 ML), Q12MO
     Route: 042
     Dates: start: 2011
  14. OSCAL [Concomitant]
     Active Substance: CALCIUM CARBONATE
     Indication: OSTEOPOROSIS
     Route: 065

REACTIONS (47)
  - Pneumonia [Recovered/Resolved]
  - Eating disorder [Unknown]
  - Pyrexia [Recovered/Resolved]
  - Influenza [Recovered/Resolved]
  - Pyrexia [Unknown]
  - Blood glucose decreased [Unknown]
  - Spinal pain [Unknown]
  - Diarrhoea [Unknown]
  - Joint swelling [Unknown]
  - Lung abscess [Recovered/Resolved]
  - Chest pain [Unknown]
  - Condition aggravated [Unknown]
  - Poor venous access [Unknown]
  - Pneumonia [Recovered/Resolved]
  - Malnutrition [Recovered/Resolved]
  - Peripheral swelling [Recovering/Resolving]
  - General physical health deterioration [Not Recovered/Not Resolved]
  - Osteoporosis [Unknown]
  - Feeling abnormal [Unknown]
  - Contusion [Recovered/Resolved]
  - Abdominal distension [Unknown]
  - Fracture [Unknown]
  - Urinary tract infection [Recovered/Resolved]
  - Muscle spasms [Unknown]
  - Fall [Unknown]
  - Vitamin D deficiency [Unknown]
  - Nervousness [Unknown]
  - Burning sensation [Unknown]
  - Back pain [Recovered/Resolved]
  - Infusion site extravasation [Not Recovered/Not Resolved]
  - Arthralgia [Unknown]
  - Asthenia [Unknown]
  - Pleural effusion [Unknown]
  - Dyspepsia [Unknown]
  - Gastrointestinal carcinoma [Unknown]
  - Bone disorder [Unknown]
  - Dysgeusia [Unknown]
  - Injection site discolouration [Not Recovered/Not Resolved]
  - Hypertension [Recovering/Resolving]
  - Cough [Recovered/Resolved]
  - Limb injury [Unknown]
  - Pain [Recovered/Resolved]
  - Asthenia [Recovered/Resolved]
  - Angiopathy [Unknown]
  - Sensitivity to weather change [Unknown]
  - Application site pain [Recovered/Resolved]
  - Scapula fracture [Recovered/Resolved]

NARRATIVE: CASE EVENT DATE: 201408
